FAERS Safety Report 6346697-0 (Version None)
Quarter: 2009Q3

REPORT INFORMATION
  Report Type: 
  Country: None (occurrence: None)
  Receive Date: 20090904
  Receipt Date: 20090828
  Transmission Date: 20100115
  Serious: Yes (Other)
  Sender: FDA-Public Use
  Company Number: 368461

PATIENT
  Age: 47 Year
  Sex: Male

DRUGS (21)
  1. ETOPOSIDE [Suspect]
     Indication: ACUTE MYELOID LEUKAEMIA
     Dosage: 100 MG/M2, OVER 30 MINS, ON DAY 1-7, INTRAVENOUS DRIP
     Route: 041
  2. CYTARABINE [Suspect]
     Indication: ACUTE MYELOID LEUKAEMIA
     Dosage: SEE IMAGE; INTRAVENOUS DRIP
     Route: 041
  3. IDARUBICIN HCL [Suspect]
     Indication: ACUTE MYELOID LEUKAEMIA
     Dosage: 9 MG/M2 DAILY ON DAYS 1-3,
  4. TROPISETRON [Concomitant]
  5. . [Concomitant]
  6. ALLOPURINOL [Concomitant]
  7. DEXAMETHASONE [Concomitant]
  8. MEROPENEM [Concomitant]
  9. FLUCONAZOLE [Concomitant]
  10. VANCOMYCIN [Concomitant]
  11. AMPHOTERICIN B [Concomitant]
  12. TEICOPLANIN [Concomitant]
  13. ACYCLOVIR [Concomitant]
  14. NEUPOGEN [Concomitant]
  15. ESMOLOL HCL [Concomitant]
  16. KETAMINE HCL [Concomitant]
  17. MORPHINE [Concomitant]
  18. PANTOPRAZOLE SODIUM [Concomitant]
  19. NORADRENALINE [Concomitant]
  20. PARACETAMOL [Concomitant]
  21. TPN [Concomitant]

REACTIONS (4)
  - FEBRILE NEUTROPENIA [None]
  - HYPERBILIRUBINAEMIA [None]
  - HYPOTENSION [None]
  - PULMONARY FUNCTION TEST ABNORMAL [None]
